FAERS Safety Report 19909589 (Version 20)
Quarter: 2025Q2

REPORT INFORMATION
  Report Type: Spontaneous
  Country: US (occurrence: US)
  Receive Date: 20211001
  Receipt Date: 20250428
  Transmission Date: 20250717
  Serious: Yes (Other)
  Sender: PFIZER
  Company Number: US-PFIZER INC-2021545886

PATIENT
  Age: 87 Year
  Sex: Female
  Weight: 80.286 kg

DRUGS (20)
  1. PREMARIN [Suspect]
     Active Substance: ESTROGENS, CONJUGATED
     Indication: Vaginal discharge
     Dosage: UNK UNK, WEEKLY
     Route: 067
  2. PREMARIN [Suspect]
     Active Substance: ESTROGENS, CONJUGATED
     Indication: Vaginal disorder
     Route: 067
  3. PREMARIN [Suspect]
     Active Substance: ESTROGENS, CONJUGATED
     Indication: Atrophic vulvovaginitis
     Dosage: INSERT 0.5 APPLICATOR(S)FUL EVERY WEEK BY VAGINAL ROUTE FOR 90 DAYS.
     Route: 067
  4. PREMARIN [Suspect]
     Active Substance: ESTROGENS, CONJUGATED
     Indication: Vulvovaginal discomfort
     Dosage: WEDNESDAY AND SUNDAY, TWICE A WEEK
     Route: 067
  5. PREMARIN [Suspect]
     Active Substance: ESTROGENS, CONJUGATED
     Indication: Vaginal infection
  6. PREMARIN [Suspect]
     Active Substance: ESTROGENS, CONJUGATED
     Dosage: PLACE 0.5 G VAGINALLY TWICE A WEEK
     Route: 067
  7. PREMARIN [Suspect]
     Active Substance: ESTROGENS, CONJUGATED
     Dosage: PLACE 0.5 G VAGINALLY DAILY
     Route: 067
  8. PREMARIN [Suspect]
     Active Substance: ESTROGENS, CONJUGATED
  9. PREMARIN [Suspect]
     Active Substance: ESTROGENS, CONJUGATED
  10. PREMARIN [Suspect]
     Active Substance: ESTROGENS, CONJUGATED
     Dosage: UNK, 1X/DAY (PM) (CREAM WITH APPLICATOR) (IN EVENING) INSERT 0.5 APPLICATOR FULL EVERY DAY
     Route: 067
  11. PREMARIN [Suspect]
     Active Substance: ESTROGENS, CONJUGATED
     Dosage: UNK, WEEKLY (INSERT 0.5 APPLICATOR(S)FUL EVERY WEEK BY VAGINAL ROUTE)
     Route: 067
  12. OSTEO-PORETICAL [Concomitant]
     Dosage: 600 MG, DAILY ((1,500 MG)-1,000 UNIT)
  13. ASPIRIN [Concomitant]
     Active Substance: ASPIRIN
     Dosage: 81 MG, DAILY
     Route: 048
  14. BETAX [Concomitant]
     Dosage: 10 MG, 1X/DAY
  15. LIPITOR [Concomitant]
     Active Substance: ATORVASTATIN CALCIUM
     Dosage: 10 MG, 1X/DAY
  16. ZYLOPRIM [Concomitant]
     Active Substance: ALLOPURINOL
     Dosage: 300 MG, 1X/DAY
     Dates: start: 20160607
  17. PRINIVIL [Concomitant]
     Active Substance: LISINOPRIL
     Dosage: 5 MG, 1X/DAY
     Dates: start: 20160212
  18. COZAAR [Concomitant]
     Active Substance: LOSARTAN POTASSIUM
     Dosage: 25 MG, 1X/DAY
     Dates: start: 20160408
  19. ZOFRAN [Concomitant]
     Active Substance: ONDANSETRON HYDROCHLORIDE
     Dosage: 8 MG, 3X/DAY
     Route: 048
     Dates: start: 20161005
  20. ZANTAC [Concomitant]
     Active Substance: RANITIDINE HYDROCHLORIDE
     Dosage: 150 MG, 2X/DAY
     Dates: start: 20161005

REACTIONS (11)
  - Atrial fibrillation [Unknown]
  - Therapeutic response unexpected [Unknown]
  - Pain [Not Recovered/Not Resolved]
  - Tension [Unknown]
  - Arthritis [Unknown]
  - Nasopharyngitis [Unknown]
  - Muscle spasms [Unknown]
  - Dysstasia [Unknown]
  - Pain in extremity [Unknown]
  - Product use complaint [Unknown]
  - Off label use [Unknown]

NARRATIVE: CASE EVENT DATE: 20230718
